FAERS Safety Report 14373045 (Version 1)
Quarter: 2018Q1

REPORT INFORMATION
  Report Type: Spontaneous
  Country: US (occurrence: US)
  Receive Date: 20180110
  Receipt Date: 20180110
  Transmission Date: 20180509
  Serious: Yes (Other)
  Sender: FDA-Public Use
  Company Number: US-ADAPT PHARMA INC-2017ADP00048

PATIENT
  Sex: Male

DRUGS (3)
  1. UNKNOWN OPIATE DRUG [Concomitant]
  2. UNSPECIFIED NASAL SPRAY [Concomitant]
     Active Substance: UNSPECIFIED INGREDIENT
  3. NARCAN [Suspect]
     Active Substance: NALOXONE HYDROCHLORIDE
     Dosage: UNK, UNK
     Route: 045
     Dates: start: 20171227, end: 20171227

REACTIONS (6)
  - Unintentional use for unapproved indication [Recovered/Resolved]
  - Dysstasia [Recovered/Resolved]
  - Abdominal pain upper [Recovered/Resolved]
  - Arthralgia [Recovered/Resolved]
  - Agitation [Recovered/Resolved]
  - Feeling abnormal [Recovered/Resolved]

NARRATIVE: CASE EVENT DATE: 20171227
